FAERS Safety Report 26116753 (Version 1)
Quarter: 2025Q4

REPORT INFORMATION
  Report Type: Spontaneous
  Country: BR (occurrence: BR)
  Receive Date: 20251203
  Receipt Date: 20251203
  Transmission Date: 20260117
  Serious: Yes (Other)
  Sender: BAYER HEALTHCARE PHARMACEUTICALS INC.
  Company Number: BR-BAYER-2025A157681

PATIENT
  Sex: Male

DRUGS (1)
  1. STIVARGA [Suspect]
     Active Substance: REGORAFENIB MONOHYDRATE

REACTIONS (8)
  - Malaise [Unknown]
  - Somnolence [Unknown]
  - Asthenia [Unknown]
  - Phonasthenia [Unknown]
  - Dry mouth [Unknown]
  - Hypoaesthesia oral [Unknown]
  - Drug intolerance [Unknown]
  - Incorrect dosage administered [Unknown]

NARRATIVE: CASE EVENT DATE: 20251101
